FAERS Safety Report 8077448-X (Version None)
Quarter: 2012Q1

REPORT INFORMATION
  Report Type: 
  Country: None (occurrence: None)
  Receive Date: 20120127
  Receipt Date: 20120125
  Transmission Date: 20120608
  Serious: Yes (Death)
  Sender: FDA-Public Use
  Company Number: PHHY2012NL001165

PATIENT
  Sex: Male

DRUGS (6)
  1. ZOMETA [Suspect]
     Dosage: 4 MG, PER 5 ML ONCE PER 4 WEEKS
     Dates: start: 20111115
  2. ZOMETA [Suspect]
     Dosage: 4 MG, PER 5 ML ONCE PER 4 WEEKS
     Dates: start: 20111214
  3. CASODEX [Concomitant]
     Dosage: 50 MG 1DD1
     Route: 048
     Dates: start: 20101125
  4. ZOMETA [Suspect]
     Indication: METASTASES TO BONE
     Dosage: 4 MG, PER 5 ML ONCE PER 4 WEEKS
     Dates: start: 20111012
  5. ZOMETA [Suspect]
     Dosage: 4 MG PER 5 ML ONCE PER 4 WEEKS
     Dates: start: 20111019
  6. ZOLADEX [Concomitant]
     Dosage: 10.8 MG ONCE PER 3 MONTHS
     Route: 058
     Dates: start: 20110428

REACTIONS (2)
  - NEOPLASM PROGRESSION [None]
  - NEOPLASM MALIGNANT [None]
